FAERS Safety Report 19802943 (Version 1)
Quarter: 2021Q3

REPORT INFORMATION
  Report Type: Spontaneous
  Country: US (occurrence: US)
  Receive Date: 20210903
  Receipt Date: 20210903
  Transmission Date: 20211014
  Serious: No
  Sender: FDA-Public Use
  Company Number: None

PATIENT
  Sex: Male

DRUGS (1)
  1. KESIMPTA [Suspect]
     Active Substance: OFATUMUMAB
     Indication: MULTIPLE SCLEROSIS
     Dosage: OTHER FREQUENCY:WEEKS 0,1 AND 2 ;?
     Route: 058
     Dates: start: 202107, end: 20210708

REACTIONS (1)
  - Therapy non-responder [None]
